FAERS Safety Report 15490393 (Version 2)
Quarter: 2018Q4

REPORT INFORMATION
  Report Type: Spontaneous
  Country: JP (occurrence: JP)
  Receive Date: 20181011
  Receipt Date: 20181011
  Transmission Date: 20190205
  Serious: Yes (Other)
  Sender: FDA-Public Use
  Company Number: PHJP2018JP017334

PATIENT
  Age: 76 Year
  Sex: Male

DRUGS (2)
  1. CICLOSPORIN [Suspect]
     Active Substance: CYCLOSPORINE
     Indication: FOCAL SEGMENTAL GLOMERULOSCLEROSIS
  2. CICLOSPORIN [Suspect]
     Active Substance: CYCLOSPORINE
     Indication: NEPHROTIC SYNDROME
     Dosage: UNK
     Route: 065

REACTIONS (6)
  - Cerebral infarction [Unknown]
  - Therapeutic response decreased [Unknown]
  - Haemolytic anaemia [Recovering/Resolving]
  - Platelet count decreased [Recovering/Resolving]
  - Atypical haemolytic uraemic syndrome [Recovering/Resolving]
  - Central nervous system lesion [Recovering/Resolving]
